FAERS Safety Report 8318648-0 (Version None)
Quarter: 2012Q2

REPORT INFORMATION
  Report Type: 
  Country: None (occurrence: None)
  Receive Date: 20120426
  Receipt Date: 20120426
  Transmission Date: 20120825
  Serious: No
  Sender: FDA-Public Use
  Company Number: None

PATIENT
  Sex: Male

DRUGS (3)
  1. RIBAVIRIN [Suspect]
     Indication: HEPATITIS C
     Dosage: 600MG BID PO
     Route: 048
     Dates: start: 20120301
  2. PEGASYS [Suspect]
     Indication: HEPATITIS C
     Dosage: 180MCG/ QW/ SQ
     Route: 058
     Dates: start: 20120301
  3. VICTRELIS [Concomitant]

REACTIONS (3)
  - FATIGUE [None]
  - UNEVALUABLE EVENT [None]
  - DECREASED APPETITE [None]
